FAERS Safety Report 10384520 (Version 1)
Quarter: 2014Q1

REPORT INFORMATION
  Report Type: Spontaneous
  Country: US (occurrence: None)
  Receive Date: 20140306
  Receipt Date: 20140306
  Transmission Date: 20141002
  Serious: Yes (Other)
  Sender: FDA-Public Use
  Company Number: 163-21880-13080795

PATIENT
  Age: 63 Year
  Sex: Male

DRUGS (5)
  1. REVLIMIB (LENALIDOMIDE) (25 MILLIGRAM, CAPSULES) [Suspect]
     Indication: PLASMA CELL MYELOMA
     Route: 048
     Dates: start: 200912
  2. LIPITOR (ATORVASTATIN) [Concomitant]
  3. IRON [Concomitant]
  4. MULTIVITAMINS [Concomitant]
  5. POTASSIUM [Concomitant]

REACTIONS (1)
  - Blood iron decreased [None]
